FAERS Safety Report 16900522 (Version 1)
Quarter: 2019Q4

REPORT INFORMATION
  Report Type: Spontaneous
  Country: US (occurrence: US)
  Receive Date: 20191009
  Receipt Date: 20191009
  Transmission Date: 20200122
  Serious: No
  Sender: FDA-Public Use
  Company Number: US-STRONGBRIDGE BIOPHARMA-2019-STR-000263

PATIENT
  Sex: Male

DRUGS (1)
  1. KEVEYIS [Suspect]
     Active Substance: DICHLORPHENAMIDE
     Indication: FAMILIAL PERIODIC PARALYSIS
     Dosage: 100 MG EVERY MORNING, 100 MG EVERY NIGHT
     Route: 048
     Dates: start: 20170414

REACTIONS (3)
  - Muscle twitching [Unknown]
  - Disease progression [Unknown]
  - Therapeutic product effect decreased [Unknown]
